FAERS Safety Report 7605555-1 (Version None)
Quarter: 2011Q3

REPORT INFORMATION
  Report Type: 
  Country: None (occurrence: None)
  Receive Date: 20110713
  Receipt Date: 20110701
  Transmission Date: 20111222
  Serious: Yes (Hospitalization, Other)
  Sender: FDA-Public Use
  Company Number: US-BAYER-2011-051497

PATIENT
  Age: 59 Year
  Sex: Female

DRUGS (1)
  1. SORAFENIB (RAF KINASE INHIBITOR) [Suspect]
     Indication: RENAL CELL CARCINOMA
     Dosage: 400 MG, BID
     Route: 048
     Dates: start: 20110605

REACTIONS (8)
  - VOCAL CORD PARALYSIS [None]
  - ASTHENIA [None]
  - DEHYDRATION [None]
  - INITIAL INSOMNIA [None]
  - DYSPHONIA [None]
  - FATIGUE [None]
  - HYPOTENSION [None]
  - FEELING HOT [None]
